FAERS Safety Report 7984318-1 (Version None)
Quarter: 2011Q4

REPORT INFORMATION
  Report Type: 
  Country: None (occurrence: None)
  Receive Date: 20111214
  Receipt Date: 20111201
  Transmission Date: 20120403
  Serious: Yes (Life-Threatening)
  Sender: FDA-Public Use
  Company Number: 1000019801

PATIENT
  Age: 63 Year
  Sex: Male
  Weight: 92 kg

DRUGS (5)
  1. THEOPHYLLINE [Concomitant]
  2. ATROVENT [Concomitant]
  3. OXYGEN [Concomitant]
  4. ROFLUMILAST (ROFLUMILAST) (TABLETS) [Suspect]
     Indication: CHRONIC OBSTRUCTIVE PULMONARY DISEASE
     Dosage: 500 MCG (500 MCG)
     Dates: start: 20110201, end: 20110304
  5. ATMADISC (SERETIDE MITE) (INHALANT) [Concomitant]

REACTIONS (1)
  - CIRCULATORY COLLAPSE [None]
